FAERS Safety Report 4896349-9 (Version None)
Quarter: 2006Q1

REPORT INFORMATION
  Report Type: 
  Country: None (occurrence: None)
  Receive Date: 20060131
  Receipt Date: 20060118
  Transmission Date: 20060701
  Serious: Yes (Other)
  Sender: FDA-Public Use
  Company Number: US-AVENTIS-200610336EU

PATIENT
  Age: 51 Year
  Sex: Male

DRUGS (6)
  1. CARDIZEM - SLOW RELEASE [Suspect]
     Indication: HYPERTENSION
     Dates: start: 20050101
  2. ACEON [Suspect]
     Indication: HYPERTENSION
     Dosage: DOSE: UNK
     Dates: start: 20050101, end: 20050101
  3. CARDURA [Suspect]
     Indication: HYPERTENSION
     Dates: start: 20050101
  4. ATACAND [Concomitant]
     Indication: DRUG USE FOR UNKNOWN INDICATION
     Dosage: DOSE: UNK
  5. ISOSORBIDE MONONITRATE [Concomitant]
     Indication: DRUG USE FOR UNKNOWN INDICATION
     Dosage: DOSE: UNK
  6. HYDROCHLOROTHIAZIDE [Concomitant]
     Indication: DRUG USE FOR UNKNOWN INDICATION
     Dosage: DOSE: UNK
     Dates: end: 20051201

REACTIONS (6)
  - BLOOD PRESSURE INADEQUATELY CONTROLLED [None]
  - C-REACTIVE PROTEIN INCREASED [None]
  - EPISTAXIS [None]
  - INFLAMMATION [None]
  - SNEEZING [None]
  - WEIGHT INCREASED [None]
